FAERS Safety Report 23453953 (Version 7)
Quarter: 2025Q2

REPORT INFORMATION
  Report Type: Report from Study
  Country: CA (occurrence: CA)
  Receive Date: 20240130
  Receipt Date: 20250512
  Transmission Date: 20250716
  Serious: Yes (Hospitalization)
  Sender: EMD SERONO INC
  Company Number: CA-Merck Healthcare KGaA-2024005011

PATIENT
  Age: 70 Year
  Sex: Female

DRUGS (2)
  1. MAVENCLAD [Suspect]
     Active Substance: CLADRIBINE
     Indication: Multiple sclerosis
  2. MAVENCLAD [Suspect]
     Active Substance: CLADRIBINE
     Dosage: YEAR ONE WEEK TWO THERAPY: AT A DOSE OF 1 TABLET ON DAYS 1 TO 5.
     Dates: start: 20231001, end: 20231005

REACTIONS (7)
  - Bacterial test positive [Not Recovered/Not Resolved]
  - Vaginal infection [Not Recovered/Not Resolved]
  - Lymphopenia [Not Recovered/Not Resolved]
  - Urinary retention [Not Recovered/Not Resolved]
  - Cystitis interstitial [Unknown]
  - Fatigue [Unknown]
  - pH urine decreased [Unknown]

NARRATIVE: CASE EVENT DATE: 20240101
